FAERS Safety Report 10445915 (Version 1)
Quarter: 2014Q3

REPORT INFORMATION
  Report Type: Spontaneous
  Country: US (occurrence: US)
  Receive Date: 20140910
  Receipt Date: 20140910
  Transmission Date: 20150326
  Serious: Yes (Life-Threatening, Hospitalization)
  Sender: FDA-Public Use
  Company Number: US-MYLANLABS-2014M1004162

PATIENT

DRUGS (6)
  1. CAFFEINE. [Concomitant]
     Active Substance: CAFFEINE
     Route: 048
  2. ASPIRIN. [Concomitant]
     Active Substance: ASPIRIN
     Route: 048
  3. IBUPROFEN. [Suspect]
     Active Substance: IBUPROFEN
     Indication: OFF LABEL USE
  4. PARACETAMOL [Concomitant]
     Active Substance: ACETAMINOPHEN
     Route: 048
  5. IBUPROFEN. [Suspect]
     Active Substance: IBUPROFEN
     Indication: OVERDOSE
     Route: 048
  6. GUAIFENESIN. [Concomitant]
     Active Substance: GUAIFENESIN
     Route: 048

REACTIONS (5)
  - Coma [Recovering/Resolving]
  - Intentional overdose [Recovering/Resolving]
  - Metabolic acidosis [Recovered/Resolved]
  - Vomiting [Unknown]
  - Respiratory acidosis [Recovering/Resolving]
